FAERS Safety Report 12348670 (Version 1)
Quarter: 2016Q2

REPORT INFORMATION
  Report Type: Spontaneous
  Country: US (occurrence: US)
  Receive Date: 20160509
  Receipt Date: 20160509
  Transmission Date: 20160815
  Serious: Yes (Other)
  Sender: FDA-Public Use
  Company Number: US-BAYER-2016-086028

PATIENT
  Age: 65 Year
  Sex: Male
  Weight: 88.44 kg

DRUGS (2)
  1. INSULIN [Concomitant]
     Active Substance: INSULIN NOS
  2. CHLOR-TRIMETON 4HOUR [Suspect]
     Active Substance: CHLORPHENIRAMINE MALEATE
     Indication: GASTRIC DISORDER
     Dosage: 1 DF, QD, BOTTLE COUNT 24 CT

REACTIONS (4)
  - Vomiting [None]
  - Aggression [None]
  - Product use issue [None]
  - Drug dependence [Not Recovered/Not Resolved]
